FAERS Safety Report 5381365-3 (Version None)
Quarter: 2007Q2

REPORT INFORMATION
  Report Type: 
  Country: None (occurrence: None)
  Receive Date: 20070629
  Receipt Date: 20070425
  Transmission Date: 20071010
  Serious: Yes (Other)
  Sender: FDA-Public Use
  Company Number: US-JNJFOC-20070307091

PATIENT
  Age: 33 Year
  Sex: Female
  Weight: 68.0396 kg

DRUGS (2)
  1. ULTRAM ER [Suspect]
     Indication: DYSMENORRHOEA
     Dosage: 100 MG, IN 1 DAY, ORAL
     Route: 048
     Dates: start: 20070314
  2. LEXAPRO [Concomitant]

REACTIONS (1)
  - CONVULSION [None]
